FAERS Safety Report 10042846 (Version 2)
Quarter: 2014Q2

REPORT INFORMATION
  Report Type: Report from Study
  Country: FR (occurrence: FR)
  Receive Date: 20140327
  Receipt Date: 20140421
  Transmission Date: 20141212
  Serious: Yes (Life-Threatening, Hospitalization, Other)
  Sender: FDA-Public Use
  Company Number: PHHY2014FR035946

PATIENT
  Age: 68 Year
  Sex: Male

DRUGS (8)
  1. MYCOPHENOLIC ACID [Suspect]
     Indication: PROPHYLAXIS AGAINST TRANSPLANT REJECTION
     Dosage: 720 MG, UNK
     Route: 048
     Dates: start: 20140212, end: 20140318
  2. KARDEGIC [Concomitant]
     Dosage: 75 MG, UNK
  3. JOSIR [Concomitant]
     Indication: BENIGN PROSTATIC HYPERPLASIA
  4. UN ALFA [Concomitant]
     Indication: HYPERPARATHYROIDISM
  5. AMLOR [Concomitant]
     Indication: HYPERTENSION
     Dosage: 10 MG, UNK
  6. PROGRAF [Concomitant]
     Indication: RENAL TRANSPLANT FAILURE
  7. CORTANCYL [Concomitant]
  8. CALCIDIA [Concomitant]

REACTIONS (6)
  - Renal failure acute [Not Recovered/Not Resolved]
  - Renal failure chronic [Not Recovered/Not Resolved]
  - Renal transplant failure [Not Recovered/Not Resolved]
  - Renal tubular atrophy [Unknown]
  - Kidney fibrosis [Unknown]
  - Renal ischaemia [Unknown]
